FAERS Safety Report 8237757 (Version 4)
Quarter: 2015Q3

REPORT INFORMATION
  Report Type: Report from Study
  Country: JP (occurrence: JP)
  Receive Date: 20111109
  Receipt Date: 20150819
  Transmission Date: 20151125
  Serious: Yes (Other)
  Sender: FDA-Public Use
  Company Number: JP-ASTRAZENECA-2011SE66151

PATIENT
  Age: 28 Year
  Sex: Female
  Weight: 62 kg

DRUGS (10)
  1. CALONAL [Concomitant]
     Active Substance: ACETAMINOPHEN
     Indication: BRONCHITIS
     Route: 048
     Dates: start: 20100907, end: 20100910
  2. HUSCODE [Concomitant]
     Active Substance: CHLORPHENIRAMINE MALEAT\DIHYDROCODEINE PHOSPHATE\METHYLEPHEDRINE HYDROCHLORIDE, DL-
     Indication: BRONCHITIS
     Route: 048
     Dates: start: 20100907, end: 20100910
  3. ALPRAZOLAM. [Concomitant]
     Active Substance: ALPRAZOLAM
     Indication: HYPERVENTILATION
     Route: 048
     Dates: start: 20100715, end: 20100916
  4. CRAVIT [Concomitant]
     Active Substance: LEVOFLOXACIN
     Indication: BRONCHITIS
     Route: 048
     Dates: start: 20100907, end: 20100910
  5. BAKUMONDO-TO [Concomitant]
     Active Substance: HERBALS
     Indication: BRONCHITIS
     Route: 048
     Dates: start: 20100902, end: 20100906
  6. SINGULAIR [Concomitant]
     Active Substance: MONTELUKAST SODIUM
     Indication: ASTHMA
     Route: 048
     Dates: start: 20100611, end: 20100916
  7. COUGHNOL [Concomitant]
     Active Substance: AMBROXOL HYDROCHLORIDE
     Indication: BRONCHITIS
     Route: 048
     Dates: start: 20100907, end: 20100910
  8. SYMBICORT [Suspect]
     Active Substance: BUDESONIDE\FORMOTEROL FUMARATE DIHYDRATE
     Indication: ASTHMA
     Dosage: 1 DF TWO TIMES A DAY
     Route: 055
     Dates: start: 20100625, end: 20100630
  9. SYMBICORT [Suspect]
     Active Substance: BUDESONIDE\FORMOTEROL FUMARATE DIHYDRATE
     Indication: ASTHMA
     Dosage: 1 DF TWO TIMES A DAY
     Route: 055
     Dates: start: 20100722, end: 20100907
  10. RIBAVARIN [Concomitant]
     Active Substance: RIBAVIRIN
     Indication: BRONCHITIS
     Route: 048
     Dates: start: 20100902, end: 20100906

REACTIONS (5)
  - Bronchitis [Recovered/Resolved]
  - Exposure during pregnancy [Unknown]
  - Dyspnoea [Recovered/Resolved]
  - Palpitations [Recovered/Resolved]
  - Abortion [Unknown]

NARRATIVE: CASE EVENT DATE: 20100626
